FAERS Safety Report 6075579-7 (Version None)
Quarter: 2009Q1

REPORT INFORMATION
  Report Type: 
  Country: None (occurrence: None)
  Receive Date: 20090212
  Receipt Date: 20090211
  Transmission Date: 20090719
  Serious: Yes (Hospitalization)
  Sender: FDA-Public Use
  Company Number: ES-ABBOTT-09P-144-0502700-00

PATIENT
  Age: 83 Year
  Sex: Female

DRUGS (6)
  1. VERAPAMIL HCL [Suspect]
     Indication: HYPERTENSION
     Route: 048
  2. LOSARTAN [Suspect]
     Indication: HYPERTENSION
     Route: 048
  3. TORASEMIDA [Suspect]
     Indication: HYPERTENSION
     Route: 048
  4. ESCITALOPRAM [Concomitant]
     Indication: DEPRESSION
     Route: 048
  5. EUGLUCON-5 [Concomitant]
     Indication: DIABETES MELLITUS
     Route: 048
  6. PREVENCOR [Concomitant]
     Indication: HYPERLIPIDAEMIA
     Route: 048

REACTIONS (2)
  - BRADYCARDIA [None]
  - HYPERKALAEMIA [None]
